FAERS Safety Report 6521587-9 (Version None)
Quarter: 2009Q4

REPORT INFORMATION
  Report Type: 
  Country: None (occurrence: None)
  Receive Date: 20091230
  Receipt Date: 20091216
  Transmission Date: 20100525
  Serious: Yes (Other)
  Sender: FDA-Public Use
  Company Number: PHHY2009JP53162

PATIENT
  Age: 72 Year
  Sex: Male

DRUGS (5)
  1. PARLODEL [Suspect]
     Indication: PARKINSON'S DISEASE
     Dosage: 5 MG DAILY
     Route: 048
  2. LEVODOPA [Suspect]
     Dosage: 300 MG DAILY
     Route: 048
  3. LEVODOPA [Suspect]
     Dosage: 400 MG, BID
     Route: 048
  4. TRIHEXYPHENIDYL HCL [Suspect]
     Indication: PARKINSON'S DISEASE
     Dosage: 6 MG DAILY
     Route: 048
  5. DOPS [Suspect]
     Indication: PARKINSON'S DISEASE
     Dosage: 400 MG DAILY
     Route: 048

REACTIONS (21)
  - AKINESIA [None]
  - CEREBRAL ATROPHY [None]
  - CEREBRAL HYPOPERFUSION [None]
  - DRUG EFFECT DECREASED [None]
  - DYSPHAGIA [None]
  - DYSTONIA [None]
  - EHLERS-DANLOS SYNDROME [None]
  - FEELING ABNORMAL [None]
  - HALLUCINATION, VISUAL [None]
  - HYPERREFLEXIA [None]
  - HYPERSOMNIA [None]
  - MENTAL STATUS CHANGES [None]
  - MOVEMENT DISORDER [None]
  - MUSCLE RIGIDITY [None]
  - NUCHAL RIGIDITY [None]
  - ORTHOSTATIC HYPOTENSION [None]
  - PARAESTHESIA [None]
  - PARKINSONIAN GAIT [None]
  - POSTURAL REFLEX IMPAIRMENT [None]
  - SOMNOLENCE [None]
  - TREMOR [None]
